FAERS Safety Report 12390325 (Version 1)
Quarter: 2016Q2

REPORT INFORMATION
  Report Type: Spontaneous
  Country: CA (occurrence: CA)
  Receive Date: 20160520
  Receipt Date: 20160520
  Transmission Date: 20160815
  Serious: Yes (Other)
  Sender: FDA-Public Use
  Company Number: ALCN2016CA003411

PATIENT
  Age: 3 Year
  Sex: Female

DRUGS (4)
  1. POVIDONE [Concomitant]
     Active Substance: POVIDONE
     Indication: PREOPERATIVE CARE
     Dosage: 1 GTT, QD
     Route: 047
  2. DEXAMETHASONE. [Suspect]
     Active Substance: DEXAMETHASONE
     Indication: POSTOPERATIVE CARE
     Dosage: UNK DF, UNK
     Route: 047
  3. TOBRAMYCIN. [Suspect]
     Active Substance: TOBRAMYCIN
     Indication: POSTOPERATIVE CARE
     Dosage: UNK GTT, UNK
     Route: 047
  4. TOBRAMYCIN. [Suspect]
     Active Substance: TOBRAMYCIN
     Indication: POSTOPERATIVE CARE
     Dosage: 1 GTT, TID
     Route: 047

REACTIONS (6)
  - Drug administered to patient of inappropriate age [Recovered/Resolved]
  - Eye swelling [Recovered/Resolved]
  - Eye pain [Unknown]
  - Cellulitis orbital [Recovering/Resolving]
  - Eye abscess [Recovering/Resolving]
  - Ocular hyperaemia [Unknown]
